FAERS Safety Report 25786940 (Version 1)
Quarter: 2025Q3

REPORT INFORMATION
  Report Type: Spontaneous
  Country: US (occurrence: PR)
  Receive Date: 20250910
  Receipt Date: 20250910
  Transmission Date: 20251021
  Serious: No
  Sender: ANI
  Company Number: US-ANIPHARMA-2025-PR-000020

PATIENT
  Age: 64 Year
  Sex: Male
  Weight: 88.45 kg

DRUGS (9)
  1. CORTICOTROPIN [Suspect]
     Active Substance: CORTICOTROPIN
     Indication: Gout
     Route: 055
  2. KRYSTEXXA [Suspect]
     Active Substance: PEGLOTICASE
  3. CellCept  8 MG [Concomitant]
     Route: 048
  4. ATORVASTATIN CALCIUM [Concomitant]
     Active Substance: ATORVASTATIN CALCIUM
     Route: 048
  5. FARXIGA [Concomitant]
     Active Substance: DAPAGLIFLOZIN PROPANEDIOL
     Route: 048
  6. JANUVIA [Concomitant]
     Active Substance: SITAGLIPTIN PHOSPHATE
     Route: 048
  7. Lantus Subcutaneous Solution [Concomitant]
  8. COREG [Concomitant]
     Active Substance: CARVEDILOL
     Route: 048
  9. LISINOPRIL [Concomitant]
     Active Substance: LISINOPRIL
     Route: 048

REACTIONS (3)
  - Inflammation [Unknown]
  - Arthralgia [Unknown]
  - Joint swelling [Unknown]
